FAERS Safety Report 12224516 (Version 2)
Quarter: 2016Q2

REPORT INFORMATION
  Report Type: Spontaneous
  Country: US (occurrence: US)
  Receive Date: 20160331
  Receipt Date: 20160421
  Transmission Date: 20160815
  Serious: Yes (Hospitalization)
  Sender: FDA-Public Use
  Company Number: US-009507513-1603USA011348

PATIENT
  Age: 42 Year
  Sex: Female

DRUGS (3)
  1. ZONTIVITY [Suspect]
     Active Substance: VORAPAXAR SULFATE
     Indication: VASCULAR STENOSIS
     Dosage: 2.08 MG, QD
     Route: 048
     Dates: start: 2015
  2. ASPIRIN. [Concomitant]
     Active Substance: ASPIRIN
     Dosage: UNK
     Route: 048
  3. PLAVIX [Concomitant]
     Active Substance: CLOPIDOGREL BISULFATE
     Dosage: UNK

REACTIONS (2)
  - Gastritis [Unknown]
  - Gastrointestinal haemorrhage [Unknown]

NARRATIVE: CASE EVENT DATE: 201512
